FAERS Safety Report 8498479-1 (Version None)
Quarter: 2012Q3

REPORT INFORMATION
  Report Type: 
  Country: None (occurrence: None)
  Receive Date: 20120709
  Receipt Date: 20120627
  Transmission Date: 20120928
  Serious: Yes (Life-Threatening, Hospitalization)
  Sender: FDA-Public Use
  Company Number: GB-ROCHE-1080144

PATIENT
  Sex: Female
  Weight: 67.5 kg

DRUGS (13)
  1. LANSOPRAZOLE [Concomitant]
     Dosage: MORNING
     Route: 048
  2. METHOTREXATE SODIUM [Suspect]
     Indication: RHEUMATOID ARTHRITIS
     Route: 048
     Dates: start: 20100630
  3. PREDNISOLONE [Concomitant]
     Dosage: AT MORNIG (MAINTENANCE DOSE)
     Route: 048
  4. ALBUTEROL SULATE [Concomitant]
     Dosage: STRENGTH: 5 MG/2.5 ML, NEBULIZER
  5. TIOTROPIUM [Concomitant]
     Dosage: INHALER
  6. THEOPHYLLINE [Concomitant]
     Dosage: AT MORNIG 8 AM AND NIGHT 10 PM
     Route: 048
  7. CELECOXIB [Concomitant]
     Dosage: MORNING
     Route: 048
  8. SYMBICORT [Concomitant]
     Dosage: 1 PUFF TWICE A DAY AT 8 AM AND 6 PM, STRENGTH 400/12
  9. ACTEMRA [Suspect]
     Indication: RHEUMATOID ARTHRITIS
     Dosage: WK 52 ONLY
     Route: 042
  10. PLACEBO [Suspect]
     Indication: RHEUMATOID ARTHRITIS
  11. SIMVASTATIN [Concomitant]
     Dosage: AT NIGHT
     Route: 048
  12. PREDNISOLONE [Concomitant]
     Dosage: AT MORNIG
     Route: 048
  13. ALENDRONATE SODIUM [Concomitant]
     Route: 048

REACTIONS (2)
  - ABDOMINAL ADHESIONS [None]
  - SMALL INTESTINAL OBSTRUCTION [None]
